FAERS Safety Report 8381433-8 (Version None)
Quarter: 2012Q2

REPORT INFORMATION
  Report Type: 
  Country: None (occurrence: None)
  Receive Date: 20120523
  Receipt Date: 20120515
  Transmission Date: 20120825
  Serious: Yes (Hospitalization)
  Sender: FDA-Public Use
  Company Number: CH-ROCHE-1069212

PATIENT
  Age: 45 Year
  Sex: Female
  Weight: 60 kg

DRUGS (12)
  1. PREDNISOLONE [Concomitant]
     Route: 048
     Dates: start: 20120315, end: 20120316
  2. KYTRIL [Concomitant]
     Route: 048
  3. PANTOZOL (SWITZERLAND) [Concomitant]
     Route: 048
  4. BECOZYM [Concomitant]
     Route: 048
  5. MABTHERA [Suspect]
     Indication: NON-HODGKIN'S LYMPHOMA
     Dosage: 375MG/M2
     Route: 042
     Dates: start: 20120215, end: 20120315
  6. BENDAMUSTINE HYDROCHLORIDE [Suspect]
     Route: 042
     Dates: start: 20120316, end: 20120317
  7. BACTRIM [Concomitant]
     Route: 048
  8. DIFLUCAN [Concomitant]
     Route: 048
  9. DIPYRONE TAB [Concomitant]
     Route: 048
  10. IBUPROFEN [Concomitant]
     Dosage: REPORTED AS GREFEN
  11. BENDAMUSTINE HYDROCHLORIDE [Suspect]
     Indication: NON-HODGKIN'S LYMPHOMA
     Dosage: 90MG/M2
     Route: 042
     Dates: start: 20120216, end: 20120217
  12. MAGNESIOCARD [Concomitant]
     Route: 048

REACTIONS (8)
  - CHEST PAIN [None]
  - NAUSEA [None]
  - ELECTROCARDIOGRAM ABNORMAL [None]
  - ANGINA PECTORIS [None]
  - HYPERVENTILATION [None]
  - CARDIAC ENZYMES INCREASED [None]
  - PAIN IN EXTREMITY [None]
  - DIZZINESS [None]
